FAERS Safety Report 12454693 (Version 2)
Quarter: 2016Q3

REPORT INFORMATION
  Report Type: Spontaneous
  Country: JP (occurrence: JP)
  Receive Date: 20160610
  Receipt Date: 20160901
  Transmission Date: 20161109
  Serious: Yes (Other)
  Sender: FDA-Public Use
  Company Number: JP-ROCHE-1772089

PATIENT
  Age: 64 Year
  Sex: Female

DRUGS (5)
  1. BASILIXIMAB [Concomitant]
     Active Substance: BASILIXIMAB
     Indication: RENAL TRANSPLANT
     Route: 065
  2. MYCOPHENOLATE MOFETIL. [Concomitant]
     Active Substance: MYCOPHENOLATE MOFETIL
     Indication: RENAL TRANSPLANT
     Route: 065
  3. CYCLOSPORIN A [Suspect]
     Active Substance: CYCLOSPORINE
     Indication: RENAL TRANSPLANT
     Route: 065
  4. METHYLPREDNISOLONE. [Concomitant]
     Active Substance: METHYLPREDNISOLONE
     Indication: RENAL TRANSPLANT
     Route: 065
  5. RITUXAN [Suspect]
     Active Substance: RITUXIMAB
     Indication: RENAL TRANSPLANT
     Dosage: SINGLE DOSAGE
     Route: 065

REACTIONS (1)
  - Haemolytic anaemia [Recovering/Resolving]
